FAERS Safety Report 7586401-1 (Version None)
Quarter: 2011Q3

REPORT INFORMATION
  Report Type: 
  Country: None (occurrence: None)
  Receive Date: 20110701
  Receipt Date: 20110621
  Transmission Date: 20111222
  Serious: Yes (Other)
  Sender: FDA-Public Use
  Company Number: A0933955A

PATIENT
  Sex: Male

DRUGS (1)
  1. FLONASE [Suspect]
     Route: 065
     Dates: start: 20070101

REACTIONS (4)
  - DRUG INEFFECTIVE [None]
  - ASTHMA [None]
  - SINUSITIS [None]
  - RHINITIS [None]
